FAERS Safety Report 7252601-3 (Version None)
Quarter: 2011Q1

REPORT INFORMATION
  Report Type: 
  Country: None (occurrence: None)
  Receive Date: 20110129
  Receipt Date: 20100416
  Transmission Date: 20110831
  Serious: No
  Sender: FDA-Public Use
  Company Number: US-ABBOTT-10P-163-0640090-00

PATIENT
  Sex: Female
  Weight: 93.978 kg

DRUGS (9)
  1. HUMIRA [Suspect]
     Dosage: DAY 8
     Dates: start: 20100424, end: 20100424
  2. NORVASC [Concomitant]
     Indication: HYPERTENSION
     Route: 048
  3. HUMIRA [Suspect]
     Indication: PSORIASIS
     Route: 058
     Dates: start: 20100416, end: 20100416
  4. ZITHROMAX [Concomitant]
     Indication: MIDDLE EAR EFFUSION
     Dates: start: 20100401
  5. ADVAIR [Concomitant]
     Indication: ASTHMA
     Dosage: 250/50 MCG
  6. CETIRIZINE HYDROCHLORIDE [Concomitant]
     Indication: HYPERSENSITIVITY
  7. FLONASE [Concomitant]
     Indication: HYPERSENSITIVITY
     Route: 045
  8. SINGULAIR [Concomitant]
     Indication: ASTHMA
  9. NICODERM [Concomitant]
     Indication: SMOKING CESSATION THERAPY
     Route: 062
     Dates: start: 20100413

REACTIONS (2)
  - INJECTION SITE PAIN [None]
  - OEDEMA PERIPHERAL [None]
